FAERS Safety Report 22603427 (Version 5)
Quarter: 2025Q3

REPORT INFORMATION
  Report Type: Report from Study
  Country: US (occurrence: US)
  Receive Date: 20230615
  Receipt Date: 20250818
  Transmission Date: 20251020
  Serious: Yes (Hospitalization, Other)
  Sender: NOVARTIS
  Company Number: US-002147023-NVSC2023US100149

PATIENT
  Age: 3 Month
  Sex: Female
  Weight: 9.6 kg

DRUGS (23)
  1. ZOLGENSMA [Suspect]
     Active Substance: ONASEMNOGENE ABEPARVOVEC-XIOI
     Indication: Spinal muscular atrophy
     Route: 042
     Dates: start: 20200729, end: 20200729
  2. PREDNISOLONE [Concomitant]
     Active Substance: PREDNISOLONE
     Indication: Product used for unknown indication
     Route: 065
     Dates: start: 20200727, end: 20200912
  3. PREDNISOLONE [Concomitant]
     Active Substance: PREDNISOLONE
     Route: 065
     Dates: start: 20200912, end: 20201014
  4. PREDNISOLONE [Concomitant]
     Active Substance: PREDNISOLONE
     Route: 065
     Dates: start: 20201015, end: 20201021
  5. PREDNISOLONE [Concomitant]
     Active Substance: PREDNISOLONE
     Route: 065
     Dates: start: 20201022, end: 20201028
  6. PREDNISOLONE [Concomitant]
     Active Substance: PREDNISOLONE
     Route: 065
     Dates: start: 20201029, end: 20201104
  7. PREDNISOLONE [Concomitant]
     Active Substance: PREDNISOLONE
     Route: 065
     Dates: start: 20201105, end: 20201111
  8. PRELONE [Concomitant]
     Active Substance: PREDNISOLONE
     Indication: Product used for unknown indication
     Route: 065
     Dates: start: 20200727, end: 20200916
  9. ORAPRED [Concomitant]
     Active Substance: PREDNISOLONE SODIUM PHOSPHATE
     Indication: Product used for unknown indication
     Route: 065
     Dates: start: 20200916, end: 20201015
  10. ORAPRED [Concomitant]
     Active Substance: PREDNISOLONE SODIUM PHOSPHATE
     Route: 065
     Dates: start: 20201015, end: 20201221
  11. NUSINERSEN [Concomitant]
     Active Substance: NUSINERSEN
     Indication: Product used for unknown indication
     Route: 065
     Dates: start: 20220421
  12. NUSINERSEN [Concomitant]
     Active Substance: NUSINERSEN
     Route: 065
     Dates: start: 20220628
  13. NUSINERSEN [Concomitant]
     Active Substance: NUSINERSEN
     Route: 065
     Dates: start: 20220712
  14. NUSINERSEN [Concomitant]
     Active Substance: NUSINERSEN
     Route: 065
     Dates: start: 20220726
  15. NUSINERSEN [Concomitant]
     Active Substance: NUSINERSEN
     Route: 065
     Dates: start: 20220830
  16. NUSINERSEN [Concomitant]
     Active Substance: NUSINERSEN
     Route: 065
     Dates: start: 20230110
  17. NUSINERSEN [Concomitant]
     Active Substance: NUSINERSEN
     Route: 065
     Dates: start: 20230516
  18. NUSINERSEN [Concomitant]
     Active Substance: NUSINERSEN
     Route: 065
     Dates: start: 20231024
  19. NUSINERSEN [Concomitant]
     Active Substance: NUSINERSEN
     Route: 065
     Dates: start: 20240228
  20. NUSINERSEN [Concomitant]
     Active Substance: NUSINERSEN
     Route: 065
     Dates: start: 20240718
  21. NUSINERSEN [Concomitant]
     Active Substance: NUSINERSEN
     Route: 065
  22. NUSINERSEN [Concomitant]
     Active Substance: NUSINERSEN
     Route: 065
     Dates: start: 20250326
  23. NUSINERSEN [Concomitant]
     Active Substance: NUSINERSEN
     Route: 065
     Dates: start: 20250724

REACTIONS (15)
  - Metabolic acidosis [Recovered/Resolved]
  - Dehydration [Recovered/Resolved]
  - Aspartate aminotransferase increased [Recovered/Resolved]
  - Alanine aminotransferase increased [Recovered/Resolved]
  - Hepatotoxicity [Recovered/Resolved]
  - Hepatomegaly [Recovered/Resolved]
  - Acute respiratory failure [Recovered/Resolved]
  - Blood alkaline phosphatase increased [Recovered/Resolved]
  - Alanine aminotransferase increased [Recovered/Resolved]
  - Alanine aminotransferase increased [Recovered/Resolved]
  - Aspartate aminotransferase increased [Recovered/Resolved]
  - Tachycardia [Recovered/Resolved]
  - Sleep apnoea syndrome [Not Recovered/Not Resolved]
  - Gastrooesophageal reflux disease [Not Recovered/Not Resolved]
  - Sleep disorder [Not Recovered/Not Resolved]

NARRATIVE: CASE EVENT DATE: 20200730
